FAERS Safety Report 9735867 (Version 1)
Quarter: 2013Q4

REPORT INFORMATION
  Report Type: Spontaneous
  Country: US (occurrence: US)
  Receive Date: 20131206
  Receipt Date: 20131206
  Transmission Date: 20140711
  Serious: No
  Sender: FDA-Public Use
  Company Number: US-GILEAD-2009-0024216

PATIENT
  Sex: Female
  Weight: 83.91 kg

DRUGS (15)
  1. LETAIRIS [Suspect]
     Indication: PULMONARY ARTERIAL HYPERTENSION
     Route: 048
     Dates: start: 20090728
  2. REVATIO [Concomitant]
  3. FUROSEMIDE [Concomitant]
  4. AMLODIPINE [Concomitant]
  5. ADVAIR [Concomitant]
  6. FLUTICASONE [Concomitant]
  7. SPIRIVA [Concomitant]
  8. ALBUTEROL [Concomitant]
  9. PANTOPRAZOLE [Concomitant]
  10. SUCRALFATE [Concomitant]
  11. KLOR-CON [Concomitant]
  12. PREDNISONE [Concomitant]
  13. HYDROXYCHLOROQUINE [Concomitant]
  14. FERROUS SULFATE [Concomitant]
  15. SYNTHROID [Concomitant]

REACTIONS (1)
  - Abdominal pain upper [Unknown]
